FAERS Safety Report 4469748-7 (Version None)
Quarter: 2004Q4

REPORT INFORMATION
  Report Type: 
  Country: None (occurrence: None)
  Receive Date: 20041008
  Receipt Date: 20040322
  Transmission Date: 20050328
  Serious: Yes (Hospitalization)
  Sender: FDA-Public Use
  Company Number: FR-ROCHE-362485

PATIENT
  Age: 26 Year
  Sex: Male

DRUGS (1)
  1. ROACCUTANE [Suspect]
     Indication: DRUG USE FOR UNKNOWN INDICATION
     Route: 065
     Dates: end: 20040215

REACTIONS (2)
  - ACUTE PSYCHOSIS [None]
  - BLOOD THYROID STIMULATING HORMONE INCREASED [None]
